FAERS Safety Report 15483335 (Version 1)
Quarter: 2018Q4

REPORT INFORMATION
  Report Type: Spontaneous
  Country: BR (occurrence: BR)
  Receive Date: 20181010
  Receipt Date: 20181010
  Transmission Date: 20190205
  Serious: Yes (Hospitalization)
  Sender: FDA-Public Use
  Company Number: BR-B.I. PHARMACEUTICALS,INC./RIDGEFIELD-2018-BI-049267

PATIENT
  Age: 82 Year
  Sex: Male
  Weight: 87 kg

DRUGS (1)
  1. OFEV [Suspect]
     Active Substance: NINTEDANIB
     Indication: IDIOPATHIC PULMONARY FIBROSIS
     Route: 065
     Dates: start: 201702

REACTIONS (5)
  - Thrombocytopenia [Unknown]
  - Oxygen saturation abnormal [Unknown]
  - Idiopathic pulmonary fibrosis [Unknown]
  - Epistaxis [Unknown]
  - Leukopenia [Unknown]

NARRATIVE: CASE EVENT DATE: 201809
